FAERS Safety Report 17447558 (Version 2)
Quarter: 2020Q1

REPORT INFORMATION
  Report Type: Spontaneous
  Country: FR (occurrence: FR)
  Receive Date: 20200221
  Receipt Date: 20200225
  Transmission Date: 20200409
  Serious: Yes (Other)
  Sender: FDA-Public Use
  Company Number: FR-LUNDBECK-DKLU3012648

PATIENT
  Age: 27 Year
  Sex: Female
  Weight: 45 kg

DRUGS (5)
  1. LAMOTRIGINE. [Suspect]
     Active Substance: LAMOTRIGINE
     Indication: EPILEPSY
     Route: 048
  2. DEPAKINE [Suspect]
     Active Substance: VALPROATE SODIUM
     Indication: EPILEPSY
     Route: 048
  3. LACOSAMIDE. [Suspect]
     Active Substance: LACOSAMIDE
     Indication: MEDICATION ERROR
     Dosage: 15 MG, TOTAL
     Route: 048
     Dates: start: 20200120, end: 20200120
  4. URBANYL [Suspect]
     Active Substance: CLOBAZAM
     Indication: MEDICATION ERROR
     Dosage: 5 MG, TOTAL
     Route: 048
     Dates: start: 20200120, end: 20200120
  5. FYCOMPA [Suspect]
     Active Substance: PERAMPANEL
     Indication: MEDICATION ERROR
     Dosage: 6 MG, TOTAL
     Route: 048
     Dates: start: 20200120, end: 20200120

REACTIONS (3)
  - Somnolence [Not Recovered/Not Resolved]
  - Wrong schedule [Unknown]
  - Depressed level of consciousness [Recovered/Resolved]
